FAERS Safety Report 7720704-2 (Version None)
Quarter: 2011Q3

REPORT INFORMATION
  Report Type: 
  Country: None (occurrence: None)
  Receive Date: 20110831
  Receipt Date: 20110824
  Transmission Date: 20111222
  Serious: Yes (Other)
  Sender: FDA-Public Use
  Company Number: PHEH2008US04229

PATIENT
  Sex: Male

DRUGS (4)
  1. AREDIA [Suspect]
  2. CELEBREX [Concomitant]
  3. AUGMENTIN '125' [Concomitant]
  4. ZOMETA [Suspect]

REACTIONS (17)
  - OSTEONECROSIS OF JAW [None]
  - FEMUR FRACTURE [None]
  - OSTEOARTHRITIS [None]
  - VERTEBRAL FORAMINAL STENOSIS [None]
  - INFECTION [None]
  - SCAR [None]
  - LUMBAR SPINAL STENOSIS [None]
  - DIAPHRAGMATIC PARALYSIS [None]
  - GAIT DISTURBANCE [None]
  - MULTIPLE MYELOMA [None]
  - OSTEOPOROSIS [None]
  - PAIN [None]
  - INTERVERTEBRAL DISC PROTRUSION [None]
  - DYSPNOEA [None]
  - COMPRESSION FRACTURE [None]
  - DIABETES MELLITUS [None]
  - LUMBAR VERTEBRAL FRACTURE [None]
